FAERS Safety Report 11515904 (Version 1)
Quarter: 2015Q3

REPORT INFORMATION
  Report Type: Spontaneous
  Country: US (occurrence: US)
  Receive Date: 20150916
  Receipt Date: 20150916
  Transmission Date: 20151125
  Serious: Yes (Other)
  Sender: FDA-Public Use
  Company Number: US-TAKEDA-2014TUS001214

PATIENT

DRUGS (47)
  1. ACTOS [Suspect]
     Active Substance: PIOGLITAZONE HYDROCHLORIDE
     Indication: TYPE 2 DIABETES MELLITUS
     Dosage: 30 MG, UNK
     Route: 048
     Dates: start: 2006, end: 201105
  2. AVANDIA [Concomitant]
     Active Substance: ROSIGLITAZONE MALEATE
     Dosage: 4 MG, UNK
     Dates: start: 200503
  3. AVANDIA [Concomitant]
     Active Substance: ROSIGLITAZONE MALEATE
     Dosage: 4 MG, UNK
     Dates: start: 200702
  4. GLUCOTROL [Concomitant]
     Active Substance: GLIPIZIDE
     Dosage: 5 MG, UNK
     Dates: start: 199506, end: 199511
  5. AMARYL [Concomitant]
     Active Substance: GLIMEPIRIDE
     Dosage: 2MG, 4MG, UNK
     Dates: start: 200609
  6. AMARYL [Concomitant]
     Active Substance: GLIMEPIRIDE
     Dosage: 2MG, 4MG, UNK
     Dates: start: 200712
  7. AMARYL [Concomitant]
     Active Substance: GLIMEPIRIDE
     Dosage: 2MG, 4MG, UNK
     Dates: start: 200804
  8. METFORMIN [Concomitant]
     Active Substance: METFORMIN HYDROCHLORIDE
     Dosage: 500 MG, UNK
     Dates: start: 201309
  9. AVANDIA [Concomitant]
     Active Substance: ROSIGLITAZONE MALEATE
     Dosage: 4 MG, UNK
     Dates: start: 200511
  10. AMARYL [Concomitant]
     Active Substance: GLIMEPIRIDE
     Dosage: 2MG, 4MG, UNK
     Dates: start: 200604
  11. AMARYL [Concomitant]
     Active Substance: GLIMEPIRIDE
     Dosage: 2MG, 4MG, UNK
     Dates: start: 200802
  12. AMARYL [Concomitant]
     Active Substance: GLIMEPIRIDE
     Dosage: 2MG, 4MG, UNK
     Dates: start: 201305
  13. AVANDIA [Concomitant]
     Active Substance: ROSIGLITAZONE MALEATE
     Dosage: 4 MG, UNK
     Dates: start: 200307
  14. AVANDIA [Concomitant]
     Active Substance: ROSIGLITAZONE MALEATE
     Dosage: 4 MG, UNK
     Dates: start: 200509
  15. AVANDIA [Concomitant]
     Active Substance: ROSIGLITAZONE MALEATE
     Dosage: 4 MG, UNK
     Dates: start: 200603
  16. GLUCOPHAGE [Concomitant]
     Active Substance: METFORMIN HYDROCHLORIDE
     Dosage: 500 MG, UNK
     Dates: start: 199506, end: 199508
  17. GLUCOPHAGE [Concomitant]
     Active Substance: METFORMIN HYDROCHLORIDE
     Dosage: 500 MG, UNK
     Dates: start: 199801
  18. AMARYL [Concomitant]
     Active Substance: GLIMEPIRIDE
     Dosage: 2MG, 4MG, UNK
     Dates: start: 201005
  19. AMARYL [Concomitant]
     Active Substance: GLIMEPIRIDE
     Dosage: 2MG, 4MG, UNK
     Dates: start: 201210
  20. AVANDIA [Concomitant]
     Active Substance: ROSIGLITAZONE MALEATE
     Dosage: 4 MG, UNK
     Dates: start: 200412
  21. AVANDIA [Concomitant]
     Active Substance: ROSIGLITAZONE MALEATE
     Dosage: 4 MG, UNK
     Dates: start: 200606
  22. AVANDIA [Concomitant]
     Active Substance: ROSIGLITAZONE MALEATE
     Dosage: 4 MG, UNK
     Dates: start: 200611
  23. GLUCOPHAGE [Concomitant]
     Active Substance: METFORMIN HYDROCHLORIDE
     Dosage: 500 MG, UNK
     Dates: start: 200001
  24. GLUCOTROL [Concomitant]
     Active Substance: GLIPIZIDE
     Dosage: 5 MG, UNK
     Dates: start: 199907
  25. AMARYL [Concomitant]
     Active Substance: GLIMEPIRIDE
     Dosage: 2MG, 4MG, UNK
     Dates: start: 200706
  26. AMARYL [Concomitant]
     Active Substance: GLIMEPIRIDE
     Dosage: 2MG, 4MG, UNK
     Dates: start: 200708
  27. AMARYL [Concomitant]
     Active Substance: GLIMEPIRIDE
     Dosage: 2MG, 4MG, UNK
     Dates: start: 201010
  28. AMARYL [Concomitant]
     Active Substance: GLIMEPIRIDE
     Dosage: 2MG, 4MG, UNK
     Dates: start: 201204
  29. AMARYL [Concomitant]
     Active Substance: GLIMEPIRIDE
     Dosage: 2MG, 4MG, UNK
     Dates: start: 201207
  30. AVANDIA [Concomitant]
     Active Substance: ROSIGLITAZONE MALEATE
     Dosage: 4 MG, UNK
     Dates: start: 200604
  31. AMARYL [Concomitant]
     Active Substance: GLIMEPIRIDE
     Dosage: 2MG, 4MG, UNK
     Dates: start: 200602
  32. AMARYL [Concomitant]
     Active Substance: GLIMEPIRIDE
     Dosage: 2MG, 4MG, UNK
     Dates: start: 200812
  33. AMARYL [Concomitant]
     Active Substance: GLIMEPIRIDE
     Dosage: 2MG, 4MG, UNK
     Dates: start: 201107
  34. GLUCOPHAGE [Concomitant]
     Active Substance: METFORMIN HYDROCHLORIDE
     Dosage: 500 MG, UNK
     Dates: start: 199908
  35. GLUCOTROL [Concomitant]
     Active Substance: GLIPIZIDE
     Dosage: 5 MG, UNK
     Dates: start: 199708
  36. METFORMIN [Concomitant]
     Active Substance: METFORMIN HYDROCHLORIDE
     Dosage: 500 MG, UNK
     Dates: start: 199506
  37. METFORMIN [Concomitant]
     Active Substance: METFORMIN HYDROCHLORIDE
     Dosage: 500 MG, UNK
     Dates: start: 201308
  38. AVANDIA [Concomitant]
     Active Substance: ROSIGLITAZONE MALEATE
     Dosage: 4 MG, UNK
     Dates: start: 200411
  39. GLUCOPHAGE [Concomitant]
     Active Substance: METFORMIN HYDROCHLORIDE
     Dosage: 500 MG, UNK
     Dates: start: 199911
  40. GLUCOPHAGE [Concomitant]
     Active Substance: METFORMIN HYDROCHLORIDE
     Dosage: 500 MG, UNK
     Dates: start: 199904
  41. AMARYL [Concomitant]
     Active Substance: GLIMEPIRIDE
     Dosage: 2MG, 4MG, UNK
     Dates: start: 200911
  42. AMARYL [Concomitant]
     Active Substance: GLIMEPIRIDE
     Dosage: 2MG, 4MG, UNK
     Dates: start: 201012
  43. AVANDIA [Concomitant]
     Active Substance: ROSIGLITAZONE MALEATE
     Dosage: 4 MG, UNK
     Dates: start: 200408
  44. AVANDIA [Concomitant]
     Active Substance: ROSIGLITAZONE MALEATE
     Dosage: 4 MG, UNK
     Dates: start: 200705
  45. AMARYL [Concomitant]
     Active Substance: GLIMEPIRIDE
     Dosage: 2MG, 4MG, UNK
     Dates: start: 200710
  46. AMARYL [Concomitant]
     Active Substance: GLIMEPIRIDE
     Dosage: 2MG, 4MG, UNK
     Dates: start: 201109
  47. AMARYL [Concomitant]
     Active Substance: GLIMEPIRIDE
     Dosage: 2MG, 4MG, UNK
     Dates: start: 201303

REACTIONS (2)
  - Bladder disorder [Unknown]
  - Bladder cancer [Unknown]
